FAERS Safety Report 5130748-5 (Version None)
Quarter: 2006Q3

REPORT INFORMATION
  Report Type: 
  Country: None (occurrence: None)
  Receive Date: 20060829
  Receipt Date: 20060512
  Transmission Date: 20061208
  Serious: No
  Sender: FDA-Public Use
  Company Number: PHEH2006US06307

PATIENT
  Age: 77 Year
  Sex: Female

DRUGS (11)
  1. EXJADE [Suspect]
     Indication: BLOOD IRON INCREASED
     Dosage: 1000 MG, QD, ORAL
     Route: 048
     Dates: start: 20060303
  2. HYDROCHLOROTHIAZIDE [Concomitant]
  3. NORVASC [Concomitant]
  4. LOTENSIN [Concomitant]
  5. ATENOLOL [Concomitant]
  6. ACTONEL [Concomitant]
  7. TRAMADOL HCL [Concomitant]
  8. LIDODERM [Concomitant]
  9. CLARINEX [Concomitant]
  10. LIPITOR [Concomitant]
  11. DETROL - SLOW RELEASE (TOLTERODINE L-TARTRATE) [Concomitant]

REACTIONS (1)
  - DRUG INEFFECTIVE [None]
